FAERS Safety Report 15015062 (Version 1)
Quarter: 2018Q2

REPORT INFORMATION
  Report Type: Spontaneous
  Country: NL (occurrence: NL)
  Receive Date: 20180615
  Receipt Date: 20180615
  Transmission Date: 20180711
  Serious: Yes (Hospitalization, Other)
  Sender: FDA-Public Use
  Company Number: NL-ABBVIE-18K-114-2383843-00

PATIENT
  Age: 32 Year
  Sex: Male

DRUGS (2)
  1. PURINETHOL [Concomitant]
     Active Substance: MERCAPTOPURINE
     Indication: CROHN^S DISEASE
     Dates: start: 2013, end: 2017
  2. HUMIRA [Suspect]
     Active Substance: ADALIMUMAB
     Indication: CROHN^S DISEASE
     Route: 058
     Dates: start: 2015, end: 2017

REACTIONS (8)
  - Prostatitis [Unknown]
  - Abdominal lymphadenopathy [Unknown]
  - Pyrexia [Unknown]
  - Crohn^s disease [Unknown]
  - Urinary tract infection [Unknown]
  - Hodgkin^s disease stage IV [Unknown]
  - Enteritis [Unknown]
  - Epstein-Barr virus infection [Unknown]

NARRATIVE: CASE EVENT DATE: 201601
